FAERS Safety Report 5967989-0 (Version None)
Quarter: 2008Q4

REPORT INFORMATION
  Report Type: 
  Country: None (occurrence: None)
  Receive Date: 20081126
  Receipt Date: 20081117
  Transmission Date: 20090506
  Serious: Yes (Other)
  Sender: FDA-Public Use
  Company Number: US-BAYER-200814433BCC

PATIENT
  Age: 90 Year
  Sex: Female
  Weight: 60 kg

DRUGS (3)
  1. ALEVE [Suspect]
     Indication: ARTHRALGIA
     Dates: end: 20081031
  2. FLECTOR [Suspect]
     Indication: DRUG USE FOR UNKNOWN INDICATION
     Dates: start: 20080501, end: 20081031
  3. FOSAMAX [Concomitant]

REACTIONS (6)
  - ABDOMINAL PAIN [None]
  - HAEMATEMESIS [None]
  - HAEMATOCRIT DECREASED [None]
  - MELAENA [None]
  - OCCULT BLOOD POSITIVE [None]
  - UPPER GASTROINTESTINAL HAEMORRHAGE [None]
